FAERS Safety Report 11432956 (Version 5)
Quarter: 2016Q1

REPORT INFORMATION
  Report Type: Spontaneous
  Country: US (occurrence: US)
  Receive Date: 20150828
  Receipt Date: 20160106
  Transmission Date: 20160525
  Serious: Yes (Death, Hospitalization, Other)
  Sender: FDA-Public Use
  Company Number: US-UCBSA-2015027199

PATIENT
  Sex: Male
  Weight: 52 kg

DRUGS (2)
  1. NEUPRO [Suspect]
     Active Substance: ROTIGOTINE
     Indication: PARKINSON^S DISEASE
     Dosage: 4 MG, ONCE DAILY (QD)
     Route: 062
     Dates: start: 201504, end: 20151018
  2. CARBIDOPA W/LEVODOPA [Concomitant]
     Active Substance: CARBIDOPA\LEVODOPA
     Indication: PARKINSON^S DISEASE
     Dosage: 25/100MG 2 TABS 2X/DAY (BID)
     Route: 048
     Dates: start: 201405, end: 20151018

REACTIONS (5)
  - Neoplasm malignant [Fatal]
  - Incision site complication [Recovering/Resolving]
  - Fall [Recovered/Resolved with Sequelae]
  - Postoperative wound infection [Recovering/Resolving]
  - Spinal disorder [Unknown]

NARRATIVE: CASE EVENT DATE: 2015
